FAERS Safety Report 8078189-5 (Version None)
Quarter: 2012Q1

REPORT INFORMATION
  Report Type: 
  Country: None (occurrence: None)
  Receive Date: 20120127
  Receipt Date: 20120119
  Transmission Date: 20120608
  Serious: Yes (Hospitalization)
  Sender: FDA-Public Use
  Company Number: IT-ASTRAZENECA-2012SE04025

PATIENT
  Sex: Female

DRUGS (2)
  1. OMEPRAZOLE [Suspect]
     Route: 048
  2. TELMISARTAN [Suspect]
     Route: 048

REACTIONS (5)
  - BALANCE DISORDER [None]
  - TREMOR [None]
  - VOMITING [None]
  - TOXICITY TO VARIOUS AGENTS [None]
  - DIPLOPIA [None]
